FAERS Safety Report 5909124-0 (Version None)
Quarter: 2008Q3

REPORT INFORMATION
  Report Type: 
  Country: None (occurrence: None)
  Receive Date: 20080929
  Receipt Date: 20080918
  Transmission Date: 20090109
  Serious: Yes (Other)
  Sender: FDA-Public Use
  Company Number: CHPA2008US14018

PATIENT
  Age: 50 Year
  Sex: Female

DRUGS (1)
  1. NICOTINE [Suspect]
     Dosage: 21 MG, QD, TRANSDERMAL; 14 MG, QD, TRANSDERMAL
     Route: 062

REACTIONS (3)
  - BLISTER [None]
  - OROPHARYNGEAL PAIN [None]
  - TONGUE BLISTERING [None]
